FAERS Safety Report 18454911 (Version 1)
Quarter: 2020Q4

REPORT INFORMATION
  Report Type: Report from Study
  Country: US (occurrence: US)
  Receive Date: 20201102
  Receipt Date: 20201102
  Transmission Date: 20210114
  Serious: Yes (Death)
  Sender: FDA-Public Use
  Company Number: US-PFIZER INC-2020421479

PATIENT

DRUGS (3)
  1. CARBOPLATIN. [Suspect]
     Active Substance: CARBOPLATIN
     Indication: CONGENITAL RETINOBLASTOMA
     Dosage: UNK, CYCLIC
     Route: 042
  2. VINCRISTINE SULFATE. [Suspect]
     Active Substance: VINCRISTINE SULFATE
     Indication: CONGENITAL RETINOBLASTOMA
     Dosage: UNK, CYCLIC
     Route: 042
  3. ETOPOSIDE. [Suspect]
     Active Substance: ETOPOSIDE
     Indication: CONGENITAL RETINOBLASTOMA
     Dosage: UNK G/M2, CYCLIC
     Route: 042

REACTIONS (1)
  - Febrile neutropenia [Fatal]
